FAERS Safety Report 6169764-3 (Version None)
Quarter: 2009Q2

REPORT INFORMATION
  Report Type: 
  Country: None (occurrence: None)
  Receive Date: 20090428
  Receipt Date: 20090422
  Transmission Date: 20091009
  Serious: Yes (Hospitalization, Other)
  Sender: FDA-Public Use
  Company Number: US-ROCHE-592576

PATIENT
  Sex: Female
  Weight: 81.6 kg

DRUGS (19)
  1. CAPECITABINE [Suspect]
     Indication: BREAST CANCER
     Route: 048
     Dates: start: 20080719, end: 20090112
  2. TRASTUZUMAB [Suspect]
     Indication: DRUG USE FOR UNKNOWN INDICATION
     Route: 065
     Dates: start: 20080701, end: 20090101
  3. LEVOXYL [Concomitant]
     Dosage: FORM: PILL
     Route: 048
  4. LASIX [Concomitant]
     Dosage: FORM: 1 PILL
     Route: 048
  5. PAXIL [Concomitant]
     Dosage: FORM: 1 PILL
     Route: 048
  6. MICRO-K [Concomitant]
     Dosage: FORM: 1 PILL
     Route: 048
  7. GLUCOPHAGE XR [Concomitant]
     Dosage: FORM: PILL
     Route: 048
  8. DOCUSATE [Concomitant]
     Indication: CONSTIPATION
  9. MIRALAX [Concomitant]
     Indication: CONSTIPATION
     Dosage: TAKEN AS DIRECTED
  10. SENOKOT [Concomitant]
     Indication: CONSTIPATION
     Dosage: TAKEN DAILY AS NEEDED
  11. DULCOLAX [Concomitant]
     Indication: CONSTIPATION
     Dosage: DRUG: DULCOLAX SUPPOSITORY. DAILY AS NEEDED
  12. PRILOSEC [Concomitant]
     Dosage: FORM: PILL. BEFORE BREAKFAST AND SUPPER
     Route: 048
  13. ROXICODONE [Concomitant]
     Indication: PAIN
     Dosage: FORM: PILLS
     Route: 048
  14. OXYCONTIN [Concomitant]
     Indication: PAIN
     Dosage: OXYCONTIN-CR, FORM:EXTENDED RELEASE TABLET.30 PILLS ON AWAKENING,20 MG MID AFTERNOON, 30MG BED TIME
     Route: 048
  15. OXYCONTIN [Concomitant]
     Dosage: DOSE INCREASED
     Route: 048
  16. CHANTIX [Concomitant]
     Dosage: AFTER BREAKFAST AND SUPPER FOR 4 DAYS TOTAL
     Route: 048
  17. CHANTIX [Concomitant]
     Dosage: AFTER BREAKFAST AND SUPPER.STARTED AT FEB 9AM AND CONTINUE UPTO 11 WEEKS TOTAL FOR SMOKING CESSATION
     Route: 048
  18. LOVENOX [Concomitant]
     Dosage: MORNING AND EVENING. TAKE AT SAME TIMES EVERY DAY. MAY CAUSE BLEEDING
     Route: 058
  19. KEFLEX [Concomitant]
     Indication: SKIN INFECTION
     Dosage: FOR 10 DAYS. DRUG NAME: KEFLEX 500 MG TAB
     Route: 048

REACTIONS (6)
  - ANAEMIA [None]
  - ARTHRITIS BACTERIAL [None]
  - BREAST CANCER [None]
  - DRUG INEFFECTIVE [None]
  - PALMAR-PLANTAR ERYTHRODYSAESTHESIA SYNDROME [None]
  - THROMBOSIS [None]
